FAERS Safety Report 8465153-7 (Version None)
Quarter: 2012Q2

REPORT INFORMATION
  Report Type: 
  Country: None (occurrence: None)
  Receive Date: 20120626
  Receipt Date: 20120620
  Transmission Date: 20120825
  Serious: Yes (Other)
  Sender: FDA-Public Use
  Company Number: US-PFIZER INC-2012149516

PATIENT
  Sex: Female
  Weight: 71.655 kg

DRUGS (2)
  1. EFFEXOR XR [Suspect]
     Indication: DEPRESSION
     Dosage: 75 MG, DAILY
  2. TRAZODONE [Concomitant]
     Dosage: 50 MG, DAILY

REACTIONS (1)
  - LUNG NEOPLASM MALIGNANT [None]
